FAERS Safety Report 17413698 (Version 2)
Quarter: 2020Q2

REPORT INFORMATION
  Report Type: Report from Study
  Country: US (occurrence: US)
  Receive Date: 20200213
  Receipt Date: 20200424
  Transmission Date: 20200713
  Serious: Yes (Other)
  Sender: FDA-Public Use
  Company Number: US-ALLERGAN-2005254US

PATIENT
  Sex: Male

DRUGS (8)
  1. BIMATOPROST 0.015 MG INS (11048X) [Suspect]
     Active Substance: BIMATOPROST
     Dosage: 0.015 MG, SINGLE
     Route: 031
     Dates: start: 20180223, end: 20180223
  2. MURO-128 [Concomitant]
     Dosage: 1 GTT, QID
     Dates: start: 20180628, end: 201809
  3. PRED FORTE [Concomitant]
     Active Substance: PREDNISOLONE ACETATE
     Dosage: 1 GTT, QID
     Dates: start: 20180626, end: 201809
  4. BIMATOPROST 0.015 MG INS (11048X) [Suspect]
     Active Substance: BIMATOPROST
     Indication: OPEN ANGLE GLAUCOMA
     Dosage: 0.015 MG, SINGLE
     Route: 031
     Dates: start: 20180614, end: 20180614
  5. COMBIGAN [Concomitant]
     Active Substance: BRIMONIDINE TARTRATE\TIMOLOL MALEATE
     Dosage: 1 GTT, BID
     Dates: start: 20180809, end: 20181004
  6. LUMIGAN [Concomitant]
     Active Substance: BIMATOPROST
     Dosage: 1 GTT, QHS
     Dates: start: 20180816
  7. ILEVRO [Concomitant]
     Active Substance: NEPAFENAC
     Dosage: 1 GTT, QID
     Dates: start: 20180626, end: 201809
  8. BIMATOPROST 0.015 MG INS (11048X) [Suspect]
     Active Substance: BIMATOPROST
     Dosage: 0.015 MG
     Route: 031
     Dates: start: 20171102, end: 20171102

REACTIONS (1)
  - Corneal endothelial cell loss [Not Recovered/Not Resolved]

NARRATIVE: CASE EVENT DATE: 20180802
